FAERS Safety Report 7835651-5 (Version None)
Quarter: 2011Q4

REPORT INFORMATION
  Report Type: 
  Country: None (occurrence: None)
  Receive Date: 20111024
  Receipt Date: 20110727
  Transmission Date: 20120403
  Serious: No
  Sender: FDA-Public Use
  Company Number: US-B.I. PHARMACEUTICALS,INC./RIDGEFIELD-2011-BP-18610BP

PATIENT
  Sex: Female

DRUGS (4)
  1. DIXOCIN [Concomitant]
     Indication: CLOSTRIDIAL INFECTION
     Route: 048
  2. PRADAXA [Suspect]
     Indication: ATRIAL FIBRILLATION
     Dosage: 150 MG
     Route: 048
     Dates: start: 20110425
  3. ATENOLOL [Concomitant]
     Indication: HYPERTENSION
     Route: 048
  4. SPIRONOLACTONE [Concomitant]
     Indication: CARDIAC FAILURE CONGESTIVE
     Route: 048

REACTIONS (1)
  - ASTHENIA [None]
